FAERS Safety Report 5305374-5 (Version None)
Quarter: 2007Q2

REPORT INFORMATION
  Report Type: 
  Country: None (occurrence: None)
  Receive Date: 20070424
  Receipt Date: 20070416
  Transmission Date: 20071010
  Serious: Yes (Hospitalization, Disabling, Other)
  Sender: FDA-Public Use
  Company Number: CA-AVENTIS-200710214GDDC

PATIENT
  Age: 63 Year
  Sex: Female
  Weight: 74.5 kg

DRUGS (10)
  1. TAXOTERE [Suspect]
     Route: 042
     Dates: start: 20050318, end: 20050318
  2. OTHER ANTINEOPLASTIC AGENTS [Suspect]
     Route: 048
     Dates: start: 20050225
  3. MYCOSTATIN                         /00036501/ [Concomitant]
     Dosage: DOSE: UNK
     Route: 048
     Dates: start: 20050308, end: 20050317
  4. PROCTOSEDYL                        /01569101/ [Concomitant]
     Dosage: DOSE: UNK
     Route: 061
     Dates: start: 20050308, end: 20050317
  5. FLUCONAZOLE [Concomitant]
     Dosage: DOSE: UNK
     Route: 048
     Dates: start: 20050309, end: 20050317
  6. DECADRON [Concomitant]
     Dosage: DOSE: UNK
     Route: 048
     Dates: start: 20050317, end: 20050319
  7. ONDANSETRON [Concomitant]
     Dosage: DOSE: UNK
     Dates: start: 20050318, end: 20050321
  8. HYDROCORTISONE [Concomitant]
     Dosage: DOSE: UNK
     Route: 061
     Dates: start: 20050309, end: 20050317
  9. NYSTATIN [Concomitant]
     Dosage: DOSE: UNK
     Route: 061
     Dates: start: 20050309, end: 20050317
  10. RAMIPRIL [Concomitant]
     Indication: HYPERTENSION
     Dosage: DOSE: 10 MG
     Dates: start: 20050331

REACTIONS (5)
  - CONJUNCTIVAL HYPERAEMIA [None]
  - FEBRILE NEUTROPENIA [None]
  - PHOTOPHOBIA [None]
  - UVEITIS [None]
  - VISION BLURRED [None]
